FAERS Safety Report 14424972 (Version 1)
Quarter: 2018Q1

REPORT INFORMATION
  Report Type: Not Available
  Country: US (occurrence: US)
  Receive Date: 20180123
  Receipt Date: 20180123
  Transmission Date: 20180509
  Serious: Yes (Hospitalization)
  Sender: FDA-Public Use
  Company Number: US-ANIPHARMA-2018-US-000556

PATIENT
  Age: 34 Year
  Sex: Male

DRUGS (1)
  1. LACTULOSE (NON-SPECIFIC) [Suspect]
     Active Substance: LACTULOSE

REACTIONS (4)
  - Hypernatraemia [Unknown]
  - Diarrhoea [Recovered/Resolved]
  - Quadriparesis [Recovered/Resolved]
  - Osmotic demyelination syndrome [Recovered/Resolved]
